FAERS Safety Report 6721963-5 (Version None)
Quarter: 2010Q2

REPORT INFORMATION
  Report Type: 
  Country: None (occurrence: None)
  Receive Date: 20100512
  Receipt Date: 20100504
  Transmission Date: 20101027
  Serious: Yes (Life-Threatening)
  Sender: FDA-Public Use
  Company Number: A0858730A

PATIENT
  Age: 52 Year
  Sex: Female

DRUGS (2)
  1. TYKERB [Suspect]
     Dosage: 1000MG PER DAY
     Route: 048
     Dates: end: 20100304
  2. HERCEPTIN [Concomitant]
     Route: 042

REACTIONS (2)
  - DIARRHOEA [None]
  - EJECTION FRACTION DECREASED [None]
